FAERS Safety Report 5140162-4 (Version None)
Quarter: 2006Q4

REPORT INFORMATION
  Report Type: 
  Country: None (occurrence: None)
  Receive Date: 20061031
  Receipt Date: 20061023
  Transmission Date: 20070319
  Serious: Yes (Hospitalization)
  Sender: FDA-Public Use
  Company Number: BR-ROCHE-468589

PATIENT
  Age: 29 Year
  Sex: Female

DRUGS (2)
  1. ROACUTAN [Suspect]
     Indication: DRUG USE FOR UNKNOWN INDICATION
     Dosage: DURATION REPORTED: LESS THAN ONE MONTH.
     Route: 048
     Dates: start: 20060915, end: 20061020
  2. UNSPECIFIED DRUG [Concomitant]
     Indication: CONTRACEPTION
     Route: 048

REACTIONS (4)
  - HAEMATOMA [None]
  - LEUKOPENIA [None]
  - THROMBOCYTOPENIA [None]
  - VAGINAL HAEMORRHAGE [None]
